FAERS Safety Report 9361247 (Version 2)
Quarter: 2013Q3

REPORT INFORMATION
  Report Type: Spontaneous
  Country: US (occurrence: US)
  Receive Date: 20130621
  Receipt Date: 20130717
  Transmission Date: 20140515
  Serious: Yes (Other)
  Sender: FDA-Public Use
  Company Number: US-JNJFOC-20130609177

PATIENT
  Age: 52 Year
  Sex: Male
  Weight: 92.99 kg

DRUGS (4)
  1. REMICADE [Suspect]
     Indication: PSORIASIS
     Dosage: DOSE ALSO REPORTED AS 700MG
     Route: 042
     Dates: start: 20080718, end: 20120810
  2. REMICADE [Suspect]
     Indication: PSORIATIC ARTHROPATHY
     Dosage: DOSE ALSO REPORTED AS 700MG
     Route: 042
     Dates: start: 20080718, end: 20120810
  3. METHOTREXATE [Suspect]
     Indication: PSORIASIS
     Route: 048
     Dates: start: 20090617, end: 20120810
  4. METHOTREXATE [Suspect]
     Indication: PSORIATIC ARTHROPATHY
     Route: 048
     Dates: start: 20090617, end: 20120810

REACTIONS (1)
  - Transitional cell carcinoma [Recovering/Resolving]
